FAERS Safety Report 8228434-8 (Version None)
Quarter: 2012Q1

REPORT INFORMATION
  Report Type: 
  Country: None (occurrence: None)
  Receive Date: 20120322
  Receipt Date: 20110706
  Transmission Date: 20120608
  Serious: No
  Sender: FDA-Public Use
  Company Number: US-BRISTOL-MYERS SQUIBB COMPANY-15878598

PATIENT

DRUGS (4)
  1. FLUOROURACIL [Suspect]
     Indication: COLORECTAL CANCER METASTATIC
     Dosage: RECEIVED A MINIMUM OF 10 CYCLES
  2. LEUCOVORIN CALCIUM [Suspect]
     Indication: COLORECTAL CANCER METASTATIC
     Dosage: RECEIVED A MINIMUM OF 10 CYCLES
  3. ERBITUX [Suspect]
     Indication: COLORECTAL CANCER METASTATIC
     Dosage: RECEIVED A MINIMUM OF 10 CYCLES
  4. IRINOTECAN HCL [Suspect]
     Indication: COLORECTAL CANCER METASTATIC
     Dosage: RECEIVED A MINIMUM OF 10 CYCLES

REACTIONS (1)
  - NAIL BED INFECTION [None]
